FAERS Safety Report 6390915-X (Version None)
Quarter: 2009Q4

REPORT INFORMATION
  Report Type: 
  Country: None (occurrence: None)
  Receive Date: 20091003
  Receipt Date: 20090924
  Transmission Date: 20100525
  Serious: Yes (Death, Congenital Anomaly)
  Sender: FDA-Public Use
  Company Number: WAES 0504USA01116

PATIENT
  Sex: Female

DRUGS (3)
  1. PEPCID [Suspect]
     Dosage: PO
     Route: 048
  2. PREDNISONE TAB [Concomitant]
  3. SUCRALFATE [Concomitant]

REACTIONS (4)
  - ABORTION INDUCED [None]
  - HYDROCEPHALUS [None]
  - MATERNAL DRUGS AFFECTING FOETUS [None]
  - SPINA BIFIDA [None]
